FAERS Safety Report 21667718 (Version 2)
Quarter: 2022Q4

REPORT INFORMATION
  Report Type: Spontaneous
  Country: CN (occurrence: CN)
  Receive Date: 20221201
  Receipt Date: 20221205
  Transmission Date: 20230113
  Serious: Yes (Hospitalization, Other)
  Sender: FDA-Public Use
  Company Number: CN-009507513-2211CHN008528

PATIENT
  Age: 45 Year
  Sex: Female

DRUGS (8)
  1. PEMBROLIZUMAB [Suspect]
     Active Substance: PEMBROLIZUMAB
     Indication: Spindle cell sarcoma
     Dosage: 200 MILLIGRAM, 3 WEEKS AS ONE CYCLE
     Route: 041
     Dates: start: 20211027
  2. PEMBROLIZUMAB [Suspect]
     Active Substance: PEMBROLIZUMAB
     Dosage: 200 MILLIGRAM, 3 WEEKS AS ONE CYCLE
     Route: 041
     Dates: start: 20211117
  3. PEMBROLIZUMAB [Suspect]
     Active Substance: PEMBROLIZUMAB
     Dosage: 200 MILLIGRAM, 3 WEEKS AS ONE CYCLE
     Route: 041
     Dates: start: 20211208
  4. PEMBROLIZUMAB [Suspect]
     Active Substance: PEMBROLIZUMAB
     Dosage: 200 MILLIGRAM, 3 WEEKS AS ONE CYCLE
     Route: 041
     Dates: start: 20211229
  5. PEMBROLIZUMAB [Suspect]
     Active Substance: PEMBROLIZUMAB
     Dosage: 200 MILLIGRAM, 3 WEEKS AS ONE CYCLE
     Route: 041
     Dates: start: 20220119
  6. CATEQUENTINIB [Suspect]
     Active Substance: CATEQUENTINIB
     Indication: Spindle cell sarcoma
     Dosage: 12 MILLIGRAM, QD, D1-14, USING 3 WEEKS AS ONE CYCLE
     Route: 048
     Dates: start: 20211018
  7. CATEQUENTINIB [Suspect]
     Active Substance: CATEQUENTINIB
     Dosage: 12 MILLIGRAM, QD, D1-14, USING 3 WEEKS AS ONE CYCLE
     Route: 048
     Dates: start: 20211108
  8. CATEQUENTINIB [Suspect]
     Active Substance: CATEQUENTINIB
     Dosage: 12 MILLIGRAM, QD, D1-7, USING 2 WEEKS AS ONE CYCLE
     Route: 048
     Dates: start: 20211201

REACTIONS (2)
  - Ascites [Not Recovered/Not Resolved]
  - Product use in unapproved indication [Unknown]

NARRATIVE: CASE EVENT DATE: 20211027
